FAERS Safety Report 6941343-7 (Version None)
Quarter: 2010Q3

REPORT INFORMATION
  Report Type: 
  Country: None (occurrence: None)
  Receive Date: 20100824
  Receipt Date: 20100824
  Transmission Date: 20110219
  Serious: Yes (Hospitalization)
  Sender: FDA-Public Use
  Company Number: None

PATIENT
  Age: 63 Year
  Sex: Male
  Weight: 85.1 kg

DRUGS (1)
  1. RAD001 ( EVEROLIMUS) [Suspect]
     Indication: WALDENSTROM'S MACROGLOBULINAEMIA
     Dosage: 5 MG, ORAL
     Route: 048
     Dates: start: 20100330

REACTIONS (5)
  - HAEMOGLOBIN DECREASED [None]
  - PLATELET COUNT DECREASED [None]
  - PNEUMONIA [None]
  - PNEUMONITIS [None]
  - PYREXIA [None]
